FAERS Safety Report 12853426 (Version 4)
Quarter: 2016Q4

REPORT INFORMATION
  Report Type: Spontaneous
  Country: IT (occurrence: IT)
  Receive Date: 20161017
  Receipt Date: 20161027
  Transmission Date: 20170207
  Serious: Yes (Other)
  Sender: FDA-Public Use
  Company Number: IT-ACCORD-044858

PATIENT
  Age: 47 Year
  Sex: Male
  Weight: 68 kg

DRUGS (3)
  1. CISPLATIN. [Suspect]
     Active Substance: CISPLATIN
     Indication: ADENOCARCINOMA GASTRIC
     Dosage: UPTO 23-SEP-2016 (192 DAYS)
     Route: 042
     Dates: start: 20160316
  2. XELODA [Suspect]
     Active Substance: CAPECITABINE
     Indication: ADENOCARCINOMA GASTRIC
     Dosage: UPTO 23-SEP-2016 (192 DAYS)
     Route: 048
     Dates: start: 20160224
  3. HERCEPTIN [Suspect]
     Active Substance: TRASTUZUMAB
     Indication: ADENOCARCINOMA GASTRIC
     Dosage: UPTO 23-SEP-2016 (192 DAYS)
     Route: 042
     Dates: start: 20160316

REACTIONS (5)
  - Anaemia [Recovering/Resolving]
  - Cystitis [Recovered/Resolved]
  - Neutropenia [Recovering/Resolving]
  - Alopecia [Not Recovered/Not Resolved]
  - Off label use [Unknown]

NARRATIVE: CASE EVENT DATE: 20160325
